FAERS Safety Report 8555176-1 (Version None)
Quarter: 2012Q3

REPORT INFORMATION
  Report Type: 
  Country: None (occurrence: None)
  Receive Date: 20120731
  Receipt Date: 20120726
  Transmission Date: 20120928
  Serious: Yes (Other)
  Sender: FDA-Public Use
  Company Number: US-ROCHE-1093162

PATIENT
  Sex: Female

DRUGS (1)
  1. ACTEMRA [Suspect]
     Indication: PRODUCT USED FOR UNKNOWN INDICATION

REACTIONS (2)
  - CARDIAC FAILURE CONGESTIVE [None]
  - EJECTION FRACTION DECREASED [None]
